FAERS Safety Report 5704972-4 (Version None)
Quarter: 2008Q2

REPORT INFORMATION
  Report Type: 
  Country: None (occurrence: None)
  Receive Date: 20080414
  Receipt Date: 20080319
  Transmission Date: 20081010
  Serious: No
  Sender: FDA-Public Use
  Company Number: US-BOEHRINGER INGELHEIM GMBH, GERMANY-2008-BP-04557BP

PATIENT
  Sex: Female

DRUGS (4)
  1. SPIRIVA [Suspect]
     Indication: CHRONIC OBSTRUCTIVE PULMONARY DISEASE
     Route: 055
     Dates: start: 20070301
  2. SPIRIVA [Suspect]
     Indication: EMPHYSEMA
  3. ADVAIR HFA [Concomitant]
     Indication: DYSPNOEA
  4. DUONEB [Concomitant]
     Indication: DYSPNOEA

REACTIONS (1)
  - HYPERSENSITIVITY [None]
